FAERS Safety Report 17639312 (Version 8)
Quarter: 2025Q3

REPORT INFORMATION
  Report Type: Report from Study
  Country: BR (occurrence: BR)
  Receive Date: 20200407
  Receipt Date: 20250715
  Transmission Date: 20251021
  Serious: Yes (Hospitalization, Other)
  Sender: NOVARTIS
  Company Number: PHHY2018BR200543

PATIENT
  Age: 35 Year
  Sex: Female
  Weight: 98 kg

DRUGS (10)
  1. COSENTYX [Suspect]
     Active Substance: SECUKINUMAB
     Indication: Psoriatic arthropathy
     Dosage: 300 MG, QW
     Route: 058
     Dates: start: 20180730
  2. COSENTYX [Suspect]
     Active Substance: SECUKINUMAB
     Dosage: 300 MG, QW
     Route: 065
     Dates: start: 201809
  3. COSENTYX [Suspect]
     Active Substance: SECUKINUMAB
     Dosage: 300 MG, QW
     Route: 065
     Dates: start: 201810
  4. COSENTYX [Suspect]
     Active Substance: SECUKINUMAB
     Dosage: 300 MG, QW
     Route: 065
     Dates: start: 201811
  5. COSENTYX [Suspect]
     Active Substance: SECUKINUMAB
     Dosage: 300 MG, QW
     Route: 065
  6. COSENTYX [Suspect]
     Active Substance: SECUKINUMAB
     Dosage: 150 MG,QW
     Route: 065
     Dates: start: 20181215
  7. COSENTYX [Suspect]
     Active Substance: SECUKINUMAB
     Dosage: 300 MG, QMO
     Route: 065
  8. COSENTYX [Suspect]
     Active Substance: SECUKINUMAB
     Dosage: 300 MG, QMO
     Route: 065
     Dates: start: 20200605
  9. AZITHROMYCIN [Suspect]
     Active Substance: AZITHROMYCIN
     Indication: Tonsillitis
     Route: 065
  10. ENOXAPARIN SODIUM [Concomitant]
     Active Substance: ENOXAPARIN SODIUM
     Indication: Product used for unknown indication
     Route: 065

REACTIONS (19)
  - Urinary tract infection [Recovered/Resolved]
  - Back pain [Recovered/Resolved]
  - Malaise [Not Recovered/Not Resolved]
  - Arthritis [Recovered/Resolved]
  - Infection [Recovered/Resolved]
  - Arthralgia [Not Recovered/Not Resolved]
  - Pain [Not Recovered/Not Resolved]
  - Erysipelas [Recovered/Resolved]
  - COVID-19 [Recovered/Resolved]
  - Immunodeficiency [Not Recovered/Not Resolved]
  - Psoriatic arthropathy [Unknown]
  - Thrombosis [Recovered/Resolved]
  - Tonsillitis [Recovered/Resolved]
  - Migraine [Unknown]
  - Headache [Unknown]
  - General physical health deterioration [Not Recovered/Not Resolved]
  - Dysstasia [Unknown]
  - Skin lesion [Recovered/Resolved]
  - Incorrect dose administered [Not Recovered/Not Resolved]

NARRATIVE: CASE EVENT DATE: 20190113
